FAERS Safety Report 7516554-2 (Version None)
Quarter: 2011Q2

REPORT INFORMATION
  Report Type: 
  Country: None (occurrence: None)
  Receive Date: 20110601
  Receipt Date: 20110525
  Transmission Date: 20111010
  Serious: Yes (Other)
  Sender: FDA-Public Use
  Company Number: B0722337A

PATIENT

DRUGS (1)
  1. SERETIDE [Suspect]
     Route: 055

REACTIONS (1)
  - OESOPHAGEAL CANDIDIASIS [None]
